FAERS Safety Report 7831694-6 (Version None)
Quarter: 2011Q4

REPORT INFORMATION
  Report Type: 
  Country: None (occurrence: None)
  Receive Date: 20111021
  Receipt Date: 20111010
  Transmission Date: 20120403
  Serious: Yes (Other)
  Sender: FDA-Public Use
  Company Number: BR-JNJFOC-2011003881

PATIENT
  Sex: Female
  Weight: 59 kg

DRUGS (3)
  1. ROGAINE [Suspect]
     Indication: ALOPECIA
     Dosage: DAILY DOSE TEXT: TWICE A DAY
     Route: 061
     Dates: end: 20110209
  2. PANTOGAR [Concomitant]
     Indication: VITAMIN SUPPLEMENTATION
     Dosage: ONCE A DAY
     Route: 048
  3. ROGAINE [Suspect]
     Indication: HAIR DISORDER
     Dosage: DAILY DOSE TEXT: TWICE A DAY
     Route: 061
     Dates: end: 20110209

REACTIONS (3)
  - MATERNAL EXPOSURE DURING PREGNANCY [None]
  - OFF LABEL USE [None]
  - ABORTION SPONTANEOUS [None]
